FAERS Safety Report 13255056 (Version 1)
Quarter: 2017Q1

REPORT INFORMATION
  Report Type: Spontaneous
  Country: US (occurrence: US)
  Receive Date: 20170217
  Receipt Date: 20170217
  Transmission Date: 20170428
  Serious: Yes (Other)
  Sender: FDA-Public Use
  Company Number: None

PATIENT
  Age: 58 Year
  Sex: Female
  Weight: 102.15 kg

DRUGS (3)
  1. LOVASTATIN. [Suspect]
     Active Substance: LOVASTATIN
  2. SIMVASTATIN. [Suspect]
     Active Substance: SIMVASTATIN
  3. PRAVASTATIN. [Suspect]
     Active Substance: PRAVASTATIN

REACTIONS (2)
  - Muscle spasms [None]
  - Drug intolerance [None]
